FAERS Safety Report 25724556 (Version 2)
Quarter: 2025Q3

REPORT INFORMATION
  Report Type: Spontaneous
  Country: GT (occurrence: GT)
  Receive Date: 20250826
  Receipt Date: 20250905
  Transmission Date: 20251021
  Serious: Yes (Disabling, Other)
  Sender: ROCHE
  Company Number: GT-ROCHE-10000356933

PATIENT
  Age: 40 Year
  Sex: Male

DRUGS (10)
  1. BEVACIZUMAB [Suspect]
     Active Substance: BEVACIZUMAB
     Indication: Diabetic retinopathy
     Dosage: AVASTIN 100 MG/4 ML X 1 VIAL?BEVACIZUMAB 1.25 MG/DL
     Route: 050
     Dates: start: 20250717
  2. TRIAMCINOLONE [Concomitant]
     Active Substance: TRIAMCINOLONE
  3. PREDNISONE ACETATE [Concomitant]
     Active Substance: PREDNISONE ACETATE
  4. Dexamethasone/moxifloxacin [Concomitant]
  5. Tropicamide/phenylephrine [Concomitant]
  6. MOXIFLOXACIN [Concomitant]
     Active Substance: MOXIFLOXACIN
  7. PHENYLEPHRINE [Concomitant]
     Active Substance: PHENYLEPHRINE
  8. VANCOMYCIN [Concomitant]
     Active Substance: VANCOMYCIN
     Route: 050
     Dates: start: 20250721
  9. CEFTAZIDIME [Concomitant]
     Active Substance: CEFTAZIDIME
     Route: 050
     Dates: start: 20250721
  10. DEXAMETHASONE [Concomitant]
     Active Substance: DEXAMETHASONE
     Route: 050
     Dates: start: 20250721

REACTIONS (12)
  - Visual acuity reduced [Recovered/Resolved]
  - Eye pain [Recovered/Resolved]
  - Conjunctival hyperaemia [Unknown]
  - Corneal disorder [Unknown]
  - Anterior chamber cell [Unknown]
  - Choroiditis [Unknown]
  - Retinal ischaemia [Unknown]
  - Hypotonia [Unknown]
  - Blindness [Unknown]
  - Off label use [Unknown]
  - Hyperaemia [Unknown]
  - Pain [Unknown]

NARRATIVE: CASE EVENT DATE: 20250717
